FAERS Safety Report 5973052-5 (Version None)
Quarter: 2008Q4

REPORT INFORMATION
  Report Type: 
  Country: None (occurrence: None)
  Receive Date: 20081201
  Receipt Date: 20081119
  Transmission Date: 20090506
  Serious: Yes (Disabling)
  Sender: FDA-Public Use
  Company Number: LV-ROCHE-598465

PATIENT
  Sex: Female

DRUGS (1)
  1. BONIVA [Suspect]
     Indication: OSTEOPOROSIS
     Route: 042
     Dates: start: 20080902, end: 20080902

REACTIONS (4)
  - ARRHYTHMIA [None]
  - BONE PAIN [None]
  - FATIGUE [None]
  - POLYURIA [None]
